FAERS Safety Report 4608486-4 (Version None)
Quarter: 2005Q1

REPORT INFORMATION
  Report Type: 
  Country: None (occurrence: None)
  Receive Date: 20050315
  Receipt Date: 20050311
  Transmission Date: 20050727
  Serious: Yes (Hospitalization)
  Sender: FDA-Public Use
  Company Number: US-GLAXOSMITHKLINE-A0549464A

PATIENT

DRUGS (6)
  1. WELLBUTRIN SR [Suspect]
     Indication: DRUG USE FOR UNKNOWN INDICATION
     Route: 048
  2. COGENTIN [Suspect]
     Indication: DRUG USE FOR UNKNOWN INDICATION
  3. TRAZODONE HCL [Suspect]
     Indication: DRUG USE FOR UNKNOWN INDICATION
  4. SEROQUEL [Suspect]
     Indication: DRUG USE FOR UNKNOWN INDICATION
  5. KLONOPIN [Suspect]
     Indication: DRUG USE FOR UNKNOWN INDICATION
  6. TRILAFON [Suspect]
     Indication: DRUG USE FOR UNKNOWN INDICATION

REACTIONS (1)
  - DRUG INTERACTION [None]
